FAERS Safety Report 25330449 (Version 1)
Quarter: 2025Q2

REPORT INFORMATION
  Report Type: Spontaneous
  Country: US (occurrence: US)
  Receive Date: 20250519
  Receipt Date: 20250519
  Transmission Date: 20250716
  Serious: No
  Sender: DR REDDYS
  Company Number: US-DRL-USA-USA/2025/04/006440

PATIENT
  Sex: Female
  Weight: 67.13 kg

DRUGS (1)
  1. NICOTINE TRANSDERMAL SYSTEM [Suspect]
     Active Substance: NICOTINE
     Indication: Smoking cessation therapy
     Dosage: SERIAL NUMBER: 1191720190
     Route: 062
     Dates: start: 20250422

REACTIONS (1)
  - Diarrhoea [Recovered/Resolved]
